FAERS Safety Report 6416348-5 (Version None)
Quarter: 2009Q4

REPORT INFORMATION
  Report Type: 
  Country: None (occurrence: None)
  Receive Date: 20091022
  Receipt Date: 20091011
  Transmission Date: 20100525
  Serious: Yes (Other)
  Sender: FDA-Public Use
  Company Number: 2009AL006614

PATIENT
  Sex: Female

DRUGS (1)
  1. PHENOBARBITAL [Suspect]
     Indication: EPILEPSY
     Dosage: 90 MG;TID;UNK

REACTIONS (2)
  - EPILEPTIC AURA [None]
  - PRODUCT QUALITY ISSUE [None]
